FAERS Safety Report 5213336-1 (Version None)
Quarter: 2007Q1

REPORT INFORMATION
  Report Type: 
  Country: None (occurrence: None)
  Receive Date: 20070119
  Receipt Date: 20060418
  Transmission Date: 20070707
  Serious: Yes (Hospitalization)
  Sender: FDA-Public Use
  Company Number: US-GLAXOSMITHKLINE-A0602157A

PATIENT

DRUGS (3)
  1. ARIXTRA [Suspect]
     Route: 058
  2. EPIDURAL [Concomitant]
  3. COUMADIN [Concomitant]

REACTIONS (1)
  - HAEMORRHAGE [None]
